FAERS Safety Report 13124342 (Version 1)
Quarter: 2017Q1

REPORT INFORMATION
  Report Type: Other
  Country: US (occurrence: US)
  Receive Date: 20170118
  Receipt Date: 20170118
  Transmission Date: 20170428
  Serious: Yes (Other)
  Sender: FDA-Public Use
  Company Number: US-LUPIN PHARMACEUTICALS INC.-2017-00266

PATIENT
  Age: 47 Year
  Sex: Male

DRUGS (7)
  1. MEMANTINE. [Concomitant]
     Active Substance: MEMANTINE
     Indication: CATATONIA
     Route: 065
  2. LORAZEPAM. [Suspect]
     Active Substance: LORAZEPAM
     Indication: CATATONIA
     Route: 048
  3. LORAZEPAM. [Suspect]
     Active Substance: LORAZEPAM
     Route: 048
  4. LORAZEPAM. [Suspect]
     Active Substance: LORAZEPAM
     Route: 042
  5. MEMANTINE. [Concomitant]
     Active Substance: MEMANTINE
     Route: 065
  6. LORAZEPAM. [Suspect]
     Active Substance: LORAZEPAM
     Indication: CATATONIA
     Route: 042
  7. HALOPERIDOL. [Concomitant]
     Active Substance: HALOPERIDOL
     Indication: AGITATION
     Route: 030

REACTIONS (4)
  - Delirium [Recovered/Resolved]
  - Fall [Unknown]
  - Condition aggravated [Recovered/Resolved]
  - Drug ineffective for unapproved indication [Unknown]
